FAERS Safety Report 4891318-7 (Version None)
Quarter: 2006Q1

REPORT INFORMATION
  Report Type: 
  Country: None (occurrence: None)
  Receive Date: 20060125
  Receipt Date: 20051019
  Transmission Date: 20060701
  Serious: Yes (Hospitalization)
  Sender: FDA-Public Use
  Company Number: NL-ABBOTT-05P-114-0314585-01

PATIENT
  Sex: Female
  Weight: 67 kg

DRUGS (18)
  1. HUMIRA [Suspect]
     Indication: RHEUMATOID ARTHRITIS
     Route: 058
     Dates: start: 20040406, end: 20040901
  2. COMMERCIAL HUMIRA [Concomitant]
     Indication: RHEUMATOID ARTHRITIS
     Route: 058
     Dates: start: 20040121
  3. PREDNISONE [Concomitant]
     Indication: RHEUMATOID ARTHRITIS
     Dates: start: 20040406, end: 20040908
  4. PARACETAMOL [Concomitant]
     Indication: PAIN
     Dates: start: 20040406
  5. ESTRADIOL INJ [Concomitant]
     Indication: HORMONE REPLACEMENT THERAPY
     Dates: start: 20030429
  6. METHOTREXATE [Concomitant]
     Indication: RHEUMATOID ARTHRITIS
     Dates: start: 20021203
  7. FOLIC ACID [Concomitant]
     Indication: PROPHYLAXIS
     Dates: start: 20011101
  8. FOLIC ACID [Concomitant]
     Indication: ABDOMINAL PAIN UPPER
  9. CALCIUM CARBONATE [Concomitant]
     Indication: OSTEOPOROSIS
     Dates: start: 20010701
  10. ACETYLSALICYLIC ACID [Concomitant]
     Indication: THROMBOSIS PROPHYLAXIS
     Dates: start: 19920101
  11. SIMVASTATIN [Concomitant]
     Indication: HYPERCHOLESTEROLAEMIA
     Dates: start: 19920101
  12. ACECLOFENAC [Concomitant]
     Indication: RHEUMATOID ARTHRITIS
     Dates: start: 19991215
  13. VERAPAMIL [Concomitant]
     Indication: MYOCARDIAL INFARCTION
     Dates: start: 19920101
  14. METOPROLOL [Concomitant]
     Indication: MYOCARDIAL INFARCTION
     Dates: start: 19920101
  15. PANTOPRAZOLE SODIUM [Concomitant]
     Indication: PROPHYLAXIS
  16. HYDROCORTISONE [Concomitant]
     Indication: PROPHYLAXIS
     Dates: start: 20040909, end: 20040909
  17. HYDROCORTISONE [Concomitant]
  18. HYDROCHLOROTHIAZIDE [Concomitant]
     Indication: HYPERTENSION
     Dosage: 50/12.5 MILLIGRAMS

REACTIONS (1)
  - ABDOMINAL ABSCESS [None]
